FAERS Safety Report 18489774 (Version 1)
Quarter: 2020Q4

REPORT INFORMATION
  Report Type: Spontaneous
  Country: US (occurrence: US)
  Receive Date: 20201110
  Receipt Date: 20201110
  Transmission Date: 20210114
  Serious: No
  Sender: FDA-Public Use
  Company Number: None

PATIENT
  Age: 66 Year
  Sex: Female
  Weight: 72 kg

DRUGS (11)
  1. TALTZ [Concomitant]
     Active Substance: IXEKIZUMAB
  2. OZTEZLA [Concomitant]
  3. ALPHA LIPOIC ACID [Concomitant]
     Active Substance: .ALPHA.-LIPOIC ACID
  4. CALCITRIOL. [Concomitant]
     Active Substance: CALCITRIOL
  5. DEXCOM G6 CGM [Concomitant]
     Active Substance: DEVICE
  6. ZORVOLEX [Concomitant]
     Active Substance: DICLOFENAC
  7. LYUMJEV [Suspect]
     Active Substance: INSULIN LISPRO-AABC
     Indication: DIABETES MELLITUS
     Dosage: ?          OTHER FREQUENCY:CONTINUOUS INFUSIO;?
     Route: 058
     Dates: start: 20200917, end: 20200930
  8. HYDROCORTISONE. [Concomitant]
     Active Substance: HYDROCORTISONE
  9. OMNIPOD EROS INSULIN PUMP [Concomitant]
  10. TIRASINT [Concomitant]
  11. ACEON [Concomitant]
     Active Substance: PERINDOPRIL ERBUMINE

REACTIONS (3)
  - Injection site mass [None]
  - Skin irritation [None]
  - Skin discomfort [None]

NARRATIVE: CASE EVENT DATE: 20200917
